FAERS Safety Report 6663389-9 (Version None)
Quarter: 2010Q2

REPORT INFORMATION
  Report Type: 
  Country: None (occurrence: None)
  Receive Date: 20100401
  Receipt Date: 20100324
  Transmission Date: 20101027
  Serious: Yes (Other)
  Sender: FDA-Public Use
  Company Number: BR-PFIZER INC-2010037564

PATIENT

DRUGS (1)
  1. CELSENTRI [Suspect]
     Route: 048

REACTIONS (1)
  - BONE MARROW DISORDER [None]
